FAERS Safety Report 6809923-7 (Version None)
Quarter: 2010Q2

REPORT INFORMATION
  Report Type: 
  Country: None (occurrence: None)
  Receive Date: 20100630
  Receipt Date: 20100623
  Transmission Date: 20101027
  Serious: Yes (Hospitalization)
  Sender: FDA-Public Use
  Company Number: A0747831A

PATIENT
  Age: 60 Year
  Sex: Male

DRUGS (1)
  1. AVANDIA [Suspect]
     Indication: DRUG USE FOR UNKNOWN INDICATION
     Dosage: 8MG THREE TIMES PER DAY
     Route: 048
     Dates: start: 20070225, end: 20080330

REACTIONS (5)
  - BLOOD GLUCOSE FLUCTUATION [None]
  - CARDIAC FAILURE CONGESTIVE [None]
  - HAEMATOCHEZIA [None]
  - MYOCARDIAL INFARCTION [None]
  - RETINAL DETACHMENT [None]
